FAERS Safety Report 15752727 (Version 2)
Quarter: 2019Q1

REPORT INFORMATION
  Report Type: Spontaneous
  Country: US (occurrence: US)
  Receive Date: 20181221
  Receipt Date: 20190302
  Transmission Date: 20190417
  Serious: Yes (Other)
  Sender: FDA-Public Use
  Company Number: US-PRINSTON PHARMACEUTICAL INC.-2018PRN01729

PATIENT
  Age: 68 Year
  Sex: Female
  Weight: 53.06 kg

DRUGS (3)
  1. CARVEDILOL. [Concomitant]
     Active Substance: CARVEDILOL
  2. HYDROCHLOROTHIAZIDE. [Concomitant]
     Active Substance: HYDROCHLOROTHIAZIDE
  3. VALSARTAN. [Suspect]
     Active Substance: VALSARTAN
     Indication: HYPERTENSION
     Dosage: 40 MG, 1X/DAY
     Route: 048
     Dates: start: 20160209, end: 2018

REACTIONS (8)
  - Radiation pneumonitis [Recovering/Resolving]
  - Fatigue [Recovered/Resolved]
  - Pneumonia [Recovering/Resolving]
  - Metastases to central nervous system [Unknown]
  - Lung carcinoma cell type unspecified stage IV [Recovered/Resolved]
  - Blood pressure inadequately controlled [Unknown]
  - Ear pain [Unknown]
  - Headache [Unknown]

NARRATIVE: CASE EVENT DATE: 2016
